FAERS Safety Report 11500520 (Version 3)
Quarter: 2016Q1

REPORT INFORMATION
  Report Type: Spontaneous
  Country: US (occurrence: US)
  Receive Date: 20150914
  Receipt Date: 20160106
  Transmission Date: 20160525
  Serious: No
  Sender: FDA-Public Use
  Company Number: US-PFIZER INC-2015293581

PATIENT
  Age: 58 Year
  Sex: Female
  Weight: 81 kg

DRUGS (8)
  1. HUMALOG [Concomitant]
     Active Substance: INSULIN LISPRO
     Dosage: SOMETIMES ONLY TAKES 3, 4 OR 5 UNITS FOR A SMALL MEAL
     Route: 058
  2. LYRICA [Suspect]
     Active Substance: PREGABALIN
     Indication: DIABETIC NEUROPATHY
     Dosage: 50 MG, 2X/DAY
     Dates: start: 20150518, end: 20150821
  3. HUMALOG [Concomitant]
     Active Substance: INSULIN LISPRO
     Indication: DIABETES MELLITUS
     Dosage: 16 IU, 3X/DAY
     Route: 058
  4. NORVASC [Concomitant]
     Active Substance: AMLODIPINE BESYLATE
     Indication: BLOOD PRESSURE ABNORMAL
     Dosage: 5 MG, 1X/DAY(BEFORE BEDTIME, AROUND 9 PM)
     Route: 048
  5. HUMULIN 70/30 [Concomitant]
     Active Substance: INSULIN HUMAN
     Indication: DIABETES MELLITUS
     Dosage: 16 IU, 1X/DAY
     Route: 058
  6. METOPROLOL. [Concomitant]
     Active Substance: METOPROLOL
     Indication: BLOOD PRESSURE ABNORMAL
     Dosage: 50 MG, 2X/DAY(IN MORNING AFTER BREAKFAST, THEN AGAIN AROUND 4 OR 5 PM)
     Route: 048
  7. LIPITOR [Concomitant]
     Active Substance: ATORVASTATIN CALCIUM
     Indication: BLOOD CHOLESTEROL INCREASED
     Dosage: 10 MG, 1X/DAY AT NIGHT
     Route: 048
  8. CLONAZEPAM. [Concomitant]
     Active Substance: CLONAZEPAM
     Indication: PANIC DISORDER
     Dosage: 0.5 MG, ONCE A DAY OR TWICE A DAY
     Route: 048

REACTIONS (11)
  - Disorientation [Recovered/Resolved]
  - Hypoaesthesia [Recovered/Resolved]
  - Condition aggravated [Recovered/Resolved]
  - Hyperhidrosis [Recovered/Resolved]
  - Panic disorder [Recovered/Resolved]
  - Euphoric mood [Recovered/Resolved]
  - Abnormal dreams [Recovered/Resolved]
  - Nightmare [Recovered/Resolved]
  - Dyskinesia [Recovered/Resolved]
  - Weight decreased [Recovered/Resolved]
  - Dysphonia [Recovered/Resolved]

NARRATIVE: CASE EVENT DATE: 20150617
